FAERS Safety Report 9994763 (Version 1)
Quarter: 2014Q1

REPORT INFORMATION
  Report Type: Spontaneous
  Country: US (occurrence: None)
  Receive Date: 20140307
  Receipt Date: 20140307
  Transmission Date: 20141002
  Serious: Yes (Other)
  Sender: FDA-Public Use
  Company Number: None

PATIENT
  Age: 74 Year
  Sex: Female
  Weight: 65.77 kg

DRUGS (14)
  1. CIPROFLOXACIN [Suspect]
     Indication: CYSTITIS
     Dosage: 14 TOOK 5 PILLS
     Dates: start: 20140208, end: 20140210
  2. METOPROLOL [Concomitant]
  3. LEVOTHYROXINE [Concomitant]
  4. ASPIRIN [Concomitant]
  5. CRANBERRY [Concomitant]
  6. VITAMIN C [Concomitant]
  7. FISH OIL [Concomitant]
  8. COQ10 [Concomitant]
  9. VITAMIN D3 [Concomitant]
  10. CALCIUM [Concomitant]
  11. B COMPLEX [Concomitant]
  12. GLUCOSAMINE [Concomitant]
  13. DIPHENHYDRAMINE [Concomitant]
  14. ACETAMINOPHEN [Concomitant]

REACTIONS (2)
  - Headache [None]
  - Hyperaesthesia [None]
